FAERS Safety Report 10576009 (Version 1)
Quarter: 2014Q4

REPORT INFORMATION
  Report Type: Spontaneous
  Country: US (occurrence: None)
  Receive Date: 20141110
  Receipt Date: 20141110
  Transmission Date: 20150529
  Serious: Yes (Life-Threatening)
  Sender: FDA-Public Use
  Company Number: None

PATIENT
  Age: 92 Year
  Sex: Male
  Weight: 81.9 kg

DRUGS (1)
  1. MORPHINE [Suspect]
     Active Substance: MORPHINE
     Indication: PAIN
     Route: 042
     Dates: start: 20141103, end: 20141104

REACTIONS (7)
  - Depressed level of consciousness [None]
  - Unresponsive to stimuli [None]
  - Confusional state [None]
  - Respiratory depression [None]
  - Incoherent [None]
  - Sedation [None]
  - Somnolence [None]

NARRATIVE: CASE EVENT DATE: 20141104
